FAERS Safety Report 25391912 (Version 9)
Quarter: 2025Q3

REPORT INFORMATION
  Report Type: Spontaneous
  Country: EU (occurrence: EU)
  Receive Date: 20250603
  Receipt Date: 20250826
  Transmission Date: 20251021
  Serious: Yes (Death, Other)
  Sender: PFIZER
  Company Number: EU-ROCHE-10000280447

PATIENT
  Age: 16 Year
  Sex: Female
  Weight: 46 kg

DRUGS (47)
  1. METHOTREXATE SODIUM [Suspect]
     Active Substance: METHOTREXATE SODIUM
     Indication: B-cell lymphoma
     Route: 037
     Dates: start: 20250428
  2. HYDROCORTISONE SODIUM SUCCINATE [Suspect]
     Active Substance: HYDROCORTISONE SODIUM SUCCINATE
     Indication: B-cell lymphoma
     Route: 037
     Dates: start: 20250428
  3. LENOGRASTIM [Suspect]
     Active Substance: LENOGRASTIM
     Indication: B-cell lymphoma
     Route: 042
     Dates: start: 20250505
  4. LENOGRASTIM [Suspect]
     Active Substance: LENOGRASTIM
     Route: 042
     Dates: start: 20250507
  5. GLOFITAMAB [Suspect]
     Active Substance: GLOFITAMAB
     Indication: B-cell lymphoma
     Route: 042
     Dates: start: 20250507
  6. OBINUTUZUMAB [Suspect]
     Active Substance: OBINUTUZUMAB
     Indication: B-cell lymphoma
     Route: 042
     Dates: start: 20250420
  7. OBINUTUZUMAB [Suspect]
     Active Substance: OBINUTUZUMAB
     Route: 042
     Dates: start: 20250430
  8. OBINUTUZUMAB [Suspect]
     Active Substance: OBINUTUZUMAB
     Route: 042
     Dates: start: 20250501
  9. IFOSFAMIDE [Suspect]
     Active Substance: IFOSFAMIDE
     Indication: B-cell lymphoma
     Route: 042
     Dates: start: 20250502
  10. CARBOPLATIN [Suspect]
     Active Substance: CARBOPLATIN
     Indication: B-cell lymphoma
     Route: 042
     Dates: start: 20250502
  11. ETOPOSIDE [Suspect]
     Active Substance: ETOPOSIDE
     Indication: B-cell lymphoma
     Route: 042
     Dates: start: 20250502
  12. MESNA [Suspect]
     Active Substance: MESNA
     Indication: B-cell lymphoma
     Route: 042
     Dates: start: 20250502
  13. GRANULOCYTE COLONY-STIMULATING FACTOR NOS [Suspect]
     Active Substance: GRANULOCYTE COLONY-STIMULATING FACTOR NOS
     Indication: B-cell lymphoma
     Route: 058
     Dates: start: 20250505
  14. GRANULOCYTE COLONY-STIMULATING FACTOR NOS [Suspect]
     Active Substance: GRANULOCYTE COLONY-STIMULATING FACTOR NOS
     Route: 042
     Dates: start: 20250505
  15. GRANULOCYTE COLONY-STIMULATING FACTOR NOS [Suspect]
     Active Substance: GRANULOCYTE COLONY-STIMULATING FACTOR NOS
     Route: 042
     Dates: start: 20250507
  16. CYTARABINE [Suspect]
     Active Substance: CYTARABINE
     Indication: B-cell lymphoma
     Route: 037
     Dates: start: 20250428
  17. VASOPRESSIN [Concomitant]
     Active Substance: VASOPRESSIN
     Indication: Hypotension
     Route: 065
  18. AMPHOTERICIN B [Concomitant]
     Active Substance: AMPHOTERICIN B
     Indication: Prophylaxis
     Route: 048
     Dates: start: 20250422, end: 20250513
  19. REDUCTO [Concomitant]
     Indication: Hypokalaemia
     Dosage: 2 DOSAGE FORM, QD
     Route: 048
     Dates: start: 20250506, end: 20250506
  20. CLEMASTINE [Concomitant]
     Active Substance: CLEMASTINE
     Indication: Prophylaxis
     Route: 042
     Dates: start: 20250430, end: 20250514
  21. DIMENHYDRINATE [Concomitant]
     Active Substance: DIMENHYDRINATE
     Indication: Nausea
     Route: 042
     Dates: start: 20250503, end: 20250505
  22. KALINOR [Concomitant]
     Indication: Hypokalaemia
     Dosage: 3 DOSAGE FORM, QD
     Route: 048
     Dates: start: 20250502, end: 20250502
  23. LEVOMEPROMAZINE [Concomitant]
     Active Substance: LEVOMEPROMAZINE
     Indication: Nausea
     Dosage: 20 MILLIGRAM, QD (LIQUID)
     Route: 048
     Dates: start: 20250506, end: 20250506
  24. POLYETHYLENE GLYCOLS [Concomitant]
     Active Substance: POLYETHYLENE GLYCOLS
     Indication: Prophylaxis
     Dosage: UNK, QD
     Route: 048
     Dates: start: 20250506, end: 20250506
  25. METAMIZOLE [Concomitant]
     Active Substance: METAMIZOLE
     Indication: Pyrexia
     Dosage: 700 MILLIGRAM, QD
     Route: 042
     Dates: start: 20250426, end: 20250426
  26. METAMIZOLE [Concomitant]
     Active Substance: METAMIZOLE
     Dosage: 700 MILLIGRAM, BID
     Route: 042
     Dates: start: 20250428, end: 20250428
  27. METAMIZOLE [Concomitant]
     Active Substance: METAMIZOLE
     Dosage: 700 MILLIGRAM, QID
     Route: 042
     Dates: start: 20250429, end: 20250429
  28. METAMIZOLE [Concomitant]
     Active Substance: METAMIZOLE
     Dosage: 700 MILLIGRAM, QD
     Route: 042
     Dates: start: 20250430, end: 20250430
  29. METAMIZOLE [Concomitant]
     Active Substance: METAMIZOLE
     Route: 042
     Dates: start: 20250503, end: 20250503
  30. METAMIZOLE [Concomitant]
     Active Substance: METAMIZOLE
     Dosage: UNK, QD
     Route: 042
     Dates: start: 20250503, end: 20250512
  31. METAMIZOLE [Concomitant]
     Active Substance: METAMIZOLE
     Route: 042
     Dates: start: 20250508, end: 20250512
  32. METAMIZOLE [Concomitant]
     Active Substance: METAMIZOLE
     Indication: Pyrexia
     Dosage: 500 MILLIGRAM, QD
     Route: 048
     Dates: start: 20250430, end: 20250430
  33. METHYLPREDNISOLONE [Concomitant]
     Active Substance: METHYLPREDNISOLONE
     Indication: Prophylaxis
     Route: 042
     Dates: start: 20250430, end: 20250507
  34. MORPHINE SULFATE [Concomitant]
     Active Substance: MORPHINE SULFATE
     Indication: Prophylaxis
     Route: 042
     Dates: start: 20250507, end: 20250511
  35. MORPHINE SULFATE [Concomitant]
     Active Substance: MORPHINE SULFATE
     Indication: Pain
  36. ONDANSETRON [Concomitant]
     Active Substance: ONDANSETRON
     Indication: Nausea
     Dosage: 7 MILLIGRAM, QD
     Route: 042
     Dates: start: 20250428, end: 20250428
  37. ONDANSETRON [Concomitant]
     Active Substance: ONDANSETRON
     Dosage: 8 MILLIGRAM, QD
     Route: 042
     Dates: start: 20250430, end: 20250430
  38. ONDANSETRON [Concomitant]
     Active Substance: ONDANSETRON
     Dosage: 8 MILLIGRAM, BID
     Route: 042
     Dates: start: 20250501, end: 20250504
  39. ONDANSETRON [Concomitant]
     Active Substance: ONDANSETRON
     Dosage: 7 MILLIGRAM, QD
     Route: 042
     Dates: start: 20250504, end: 20250504
  40. ONDANSETRON [Concomitant]
     Active Substance: ONDANSETRON
     Dosage: 7 MILLIGRAM, BID
     Route: 042
     Dates: start: 20250505, end: 20250506
  41. PANTOPRAZOLE [Concomitant]
     Active Substance: PANTOPRAZOLE
     Indication: Prophylaxis
     Dosage: 20 MILLIGRAM, QD
     Route: 048
     Dates: start: 20250430, end: 20250506
  42. ACETAMINOPHEN [Concomitant]
     Active Substance: ACETAMINOPHEN
     Indication: Prophylaxis
     Route: 042
     Dates: start: 20250430, end: 20250508
  43. ACETAMINOPHEN [Concomitant]
     Active Substance: ACETAMINOPHEN
     Indication: Pyrexia
     Dosage: 500 MILLIGRAM, QD
     Route: 042
     Dates: start: 20250501, end: 20250501
  44. PIPERACILLIN SODIUM\TAZOBACTAM SODIUM [Concomitant]
     Active Substance: PIPERACILLIN SODIUM\TAZOBACTAM SODIUM
     Indication: Prophylaxis
     Dosage: 4 GRAM, BID
     Route: 042
     Dates: start: 20250508, end: 20250508
  45. VALACYCLOVIR HYDROCHLORIDE [Concomitant]
     Active Substance: VALACYCLOVIR HYDROCHLORIDE
     Indication: Prophylaxis
     Dosage: 500 MILLIGRAM, BID
     Route: 048
     Dates: start: 20250326, end: 20250430
  46. VANCOMYCIN [Concomitant]
     Active Substance: VANCOMYCIN
     Indication: Prophylaxis
     Dosage: 650 MILLIGRAM, BID
     Route: 042
     Dates: start: 20250508, end: 20250508
  47. VANCOMYCIN [Concomitant]
     Active Substance: VANCOMYCIN
     Dosage: 650 MILLIGRAM, TID
     Route: 042
     Dates: start: 20250509, end: 20250511

REACTIONS (3)
  - Death [Fatal]
  - Cytokine release syndrome [Recovered/Resolved]
  - Off label use [Unknown]

NARRATIVE: CASE EVENT DATE: 20250428
